FAERS Safety Report 25742604 (Version 2)
Quarter: 2025Q3

REPORT INFORMATION
  Report Type: Spontaneous
  Country: EU (occurrence: EU)
  Receive Date: 20250829
  Receipt Date: 20250915
  Transmission Date: 20251020
  Serious: Yes (Other)
  Sender: CELLTRION
  Company Number: EU-AMGEN-DEUSP2025152448

PATIENT

DRUGS (12)
  1. ADALIMUMAB [Suspect]
     Active Substance: ADALIMUMAB
     Indication: Still^s disease
     Dosage: 40 MILLIGRAM, Q2WK (FOR 2 MONTHS)
     Route: 065
  2. ADALIMUMAB [Suspect]
     Active Substance: ADALIMUMAB
  3. ANAKINRA [Concomitant]
     Active Substance: ANAKINRA
     Indication: Still^s disease
     Route: 065
  4. AZATHIOPRINE [Concomitant]
     Active Substance: AZATHIOPRINE
     Indication: Still^s disease
  5. METHOTREXATE [Concomitant]
     Active Substance: METHOTREXATE
     Indication: Still^s disease
     Route: 048
  6. METHOTREXATE [Concomitant]
     Active Substance: METHOTREXATE
     Dosage: 15 MILLIGRAM, QWK (FOR 8 MONTHS)
     Route: 058
  7. COLCHICINE [Concomitant]
     Active Substance: COLCHICINE
     Indication: Still^s disease
  8. CYCLOSPORINE [Concomitant]
     Active Substance: CYCLOSPORINE
     Indication: Still^s disease
  9. TOCILIZUMAB [Concomitant]
     Active Substance: TOCILIZUMAB
     Indication: Still^s disease
     Dosage: 162 MILLIGRAM, QWK
  10. CANAKINUMAB [Concomitant]
     Active Substance: CANAKINUMAB
     Indication: Still^s disease
     Dosage: 150 MILLIGRAM, QMO
  11. UPADACITINIB [Concomitant]
     Active Substance: UPADACITINIB
     Indication: Still^s disease
  12. TOFACITINIB [Concomitant]
     Active Substance: TOFACITINIB
     Indication: Still^s disease

REACTIONS (11)
  - Myelodysplastic syndrome [Unknown]
  - Cytokine release syndrome [Unknown]
  - Acute kidney injury [Unknown]
  - Adrenal insufficiency [Unknown]
  - VEXAS syndrome [Recovered/Resolved]
  - Atrial fibrillation [Unknown]
  - Meningitis listeria [Unknown]
  - Febrile neutropenia [Unknown]
  - Infection [Unknown]
  - Drug ineffective for unapproved indication [Unknown]
  - Off label use [Unknown]

NARRATIVE: CASE EVENT DATE: 20220201
